FAERS Safety Report 8823212 (Version 3)
Quarter: 2012Q4

REPORT INFORMATION
  Report Type: 
  Country: DE (occurrence: DE)
  Receive Date: 20121003
  Receipt Date: 20121213
  Transmission Date: 20130627
  Serious: Yes (Hospitalization, Other)
  Sender: FDA-Public Use
  Company Number: DE-ELI_LILLY_AND_COMPANY-DE201209006049

PATIENT
  Age: 70 Year
  Sex: Female

DRUGS (2)
  1. FORSTEO [Suspect]
     Dosage: UNK, qd
     Route: 058
     Dates: start: 20101222, end: 20120820
  2. FORSTEO [Suspect]
     Dosage: UNK, qd
     Route: 058
     Dates: start: 20121129

REACTIONS (6)
  - Large intestine perforation [Not Recovered/Not Resolved]
  - Wound [Not Recovered/Not Resolved]
  - Joint swelling [Not Recovered/Not Resolved]
  - Oedema peripheral [Not Recovered/Not Resolved]
  - Alopecia [Not Recovered/Not Resolved]
  - Weight decreased [Not Recovered/Not Resolved]
